FAERS Safety Report 4838131-4 (Version None)
Quarter: 2005Q4

REPORT INFORMATION
  Report Type: 
  Country: None (occurrence: None)
  Receive Date: 20051114
  Receipt Date: 20051028
  Transmission Date: 20060501
  Serious: Yes (Death)
  Sender: FDA-Public Use
  Company Number: 200511006BVD

PATIENT
  Sex: Female
  Weight: 70 kg

DRUGS (12)
  1. GAMUNEX [Suspect]
     Dosage: SEE IMAGE
     Route: 042
     Dates: start: 20050511
  2. GAMUNEX [Suspect]
     Dosage: SEE IMAGE
     Route: 042
     Dates: start: 20050518
  3. GAMUNEX [Suspect]
     Dosage: SEE IMAGE
     Route: 042
     Dates: start: 20050524
  4. GAMUNEX [Suspect]
     Dosage: SEE IMAGE
     Route: 042
     Dates: start: 20050531
  5. GAMUNEX [Suspect]
     Dosage: SEE IMAGE
     Route: 042
     Dates: start: 20050607
  6. GAMUNEX [Suspect]
  7. GAMUNEX [Suspect]
  8. DECORTIN H [Concomitant]
  9. BRONCHORETARD [Concomitant]
  10. TOREM [Concomitant]
  11. L-THYROXINE [Concomitant]
  12. ZOMETA [Concomitant]

REACTIONS (1)
  - DEATH [None]
